FAERS Safety Report 6301689-2 (Version None)
Quarter: 2009Q3

REPORT INFORMATION
  Report Type: 
  Country: None (occurrence: None)
  Receive Date: 20090807
  Receipt Date: 20090804
  Transmission Date: 20100115
  Serious: Yes (Life-Threatening, Hospitalization, Other)
  Sender: FDA-Public Use
  Company Number: PHHY2009JP27226

PATIENT
  Sex: Male
  Weight: 52 kg

DRUGS (6)
  1. TEGRETOL [Suspect]
     Indication: ENCEPHALOPATHY
     Dosage: 400MG, DAILY
     Route: 048
     Dates: start: 20090603, end: 20090625
  2. GABAPENTIN [Concomitant]
     Indication: CONVULSION
     Dosage: 1200 MG, UNK
     Route: 048
     Dates: start: 20090515, end: 20090625
  3. GABAPENTIN [Concomitant]
     Dosage: 1200 MG
     Route: 048
  4. EXCEGRAN [Concomitant]
     Indication: CONVULSION
     Dosage: 400 MG DAILY
     Route: 048
     Dates: start: 20090511, end: 20090625
  5. EXCEGRAN [Concomitant]
     Dosage: 400 MG DAILY
     Route: 048
  6. SOLANAX [Concomitant]
     Indication: ANXIETY
     Dosage: 1.2 MG, UNK
     Route: 048
     Dates: start: 20090529, end: 20090626

REACTIONS (9)
  - ABNORMAL BEHAVIOUR [None]
  - AGRANULOCYTOSIS [None]
  - C-REACTIVE PROTEIN INCREASED [None]
  - LOSS OF CONSCIOUSNESS [None]
  - MONOCYTE COUNT INCREASED [None]
  - NEUTROPHIL COUNT DECREASED [None]
  - PYREXIA [None]
  - RESTLESSNESS [None]
  - WHITE BLOOD CELL COUNT DECREASED [None]
